FAERS Safety Report 6287983-2 (Version None)
Quarter: 2009Q3

REPORT INFORMATION
  Report Type: 
  Country: None (occurrence: None)
  Receive Date: 20090729
  Receipt Date: 20070814
  Transmission Date: 20100115
  Serious: Yes (Hospitalization, Other)
  Sender: FDA-Public Use
  Company Number: US-ASTRAZENECA-2006UW24108

PATIENT
  Age: 17789 Day
  Sex: Female
  Weight: 87.1 kg

DRUGS (19)
  1. SEROQUEL [Suspect]
     Indication: BIPOLAR DISORDER
     Dosage: 1 - 2 AT NIGHT
     Route: 048
     Dates: start: 20040227
  2. SEROQUEL [Suspect]
     Dosage: 80 MG  / TOTAL DAILY DOSE - 80 MG
     Route: 048
  3. RISPERDAL [Concomitant]
  4. ZYPREXA [Concomitant]
  5. XANAX [Concomitant]
     Dosage: STRENGTH - 0.5 MG, 1 MG, 2 MG, DOSE - 0.5 - 6 MG DAILY
     Route: 048
     Dates: start: 19940101
  6. METHADONE HCL [Concomitant]
  7. LITHIUM CARBONATE [Concomitant]
     Dosage: STRENGTH - 3 MG, 300 MG, 600 MG, DOSE - 6 MG TO 1200 MG DAILY
     Route: 048
     Dates: start: 20051202
  8. GEODON [Concomitant]
     Dosage: STRENGTH - 40 MG, 80 MG, DOSE - 80 TO 160 MG DAILY
     Route: 048
     Dates: start: 20051202
  9. ALBUTEROL [Concomitant]
     Dosage: 2 PUFFS Q. 6H. PRN
     Dates: start: 20070202
  10. AMBIEN [Concomitant]
     Dates: start: 20070202
  11. HYDROCODONE BITARTRATE + ACETAMINOPHEN [Concomitant]
     Dosage: STRENGTH - 10 / 325, 7.5 / 500, DOSE - 20 / 650 - 45 / 3000 DAILY
     Route: 048
     Dates: start: 20051202
  12. ASPIRIN [Concomitant]
     Route: 048
     Dates: start: 20070202
  13. TIZANIDINE HCL [Concomitant]
     Route: 048
     Dates: start: 20070203
  14. MORPHINE [Concomitant]
     Dosage: STRENGTH - 2 MG / ML, DOSE - 4 MG
     Route: 042
     Dates: start: 20051203
  15. ZOLOFT [Concomitant]
     Dosage: STRENGTH - 100 MG, 200 MG, DOSE - 100 MG TO 200 MG
     Dates: start: 19940101
  16. TRILEPTAL [Concomitant]
     Dates: start: 20040227
  17. LISINOPRIL [Concomitant]
     Route: 048
     Dates: start: 20060303
  18. ATIVAN [Concomitant]
     Dates: start: 20051113
  19. NEXIUM [Concomitant]
     Dates: start: 20050722

REACTIONS (5)
  - DIABETES MELLITUS [None]
  - DIABETES MELLITUS INADEQUATE CONTROL [None]
  - PANCREATITIS [None]
  - PANCREATITIS CHRONIC [None]
  - TYPE 2 DIABETES MELLITUS [None]
